FAERS Safety Report 25199259 (Version 1)
Quarter: 2025Q2

REPORT INFORMATION
  Report Type: Spontaneous
  Country: US (occurrence: US)
  Receive Date: 20250415
  Receipt Date: 20250415
  Transmission Date: 20250717
  Serious: No
  Sender: TEVA
  Company Number: US-TEVA-VS-3317537

PATIENT
  Age: 39 Year
  Sex: Female
  Weight: 73 kg

DRUGS (10)
  1. DEXTROAMPHETAMINE [Suspect]
     Active Substance: DEXTROAMPHETAMINE
     Indication: Product used for unknown indication
     Route: 065
  2. ADDERALL [Suspect]
     Active Substance: AMPHETAMINE ASPARTATE\AMPHETAMINE SULFATE\DEXTROAMPHETAMINE SACCHARATE\DEXTROAMPHETAMINE SULFATE
     Indication: Product used for unknown indication
     Route: 065
  3. LUMRYZ [Suspect]
     Active Substance: SODIUM OXYBATE
     Indication: Narcolepsy
     Dosage: EXTENDED-RELEASE ORAL SUSPENSION, ONCE NIGHTLY
     Route: 048
     Dates: start: 202502, end: 202502
  4. LUMRYZ [Suspect]
     Active Substance: SODIUM OXYBATE
     Indication: Narcolepsy
     Dosage: EXTENDED-RELEASE ORAL SUSPENSION, ONCE NIGHTLY
     Route: 048
     Dates: start: 202502, end: 202503
  5. LUMRYZ [Suspect]
     Active Substance: SODIUM OXYBATE
     Indication: Narcolepsy
     Dosage: EXTENDED-RELEASE ORAL SUSPENSION, ONCE NIGHTLY
     Route: 048
     Dates: start: 202503
  6. ALCOHOL [Concomitant]
     Active Substance: ALCOHOL
     Indication: Product used for unknown indication
  7. ALBUTEROL SULFATE [Concomitant]
     Active Substance: ALBUTEROL SULFATE
     Indication: Product used for unknown indication
  8. IBUPROFEN [Concomitant]
     Active Substance: IBUPROFEN
     Indication: Product used for unknown indication
  9. THEANINE [Concomitant]
     Active Substance: THEANINE
     Indication: Product used for unknown indication
  10. ALLEGRA [Concomitant]
     Active Substance: FEXOFENADINE HYDROCHLORIDE
     Indication: Product used for unknown indication

REACTIONS (7)
  - Feeling abnormal [Unknown]
  - Dizziness [Unknown]
  - Blood pressure increased [Unknown]
  - Product dose omission issue [Unknown]
  - Intentional dose omission [Unknown]
  - Vertigo [Unknown]
  - Unevaluable event [Unknown]

NARRATIVE: CASE EVENT DATE: 20250101
